FAERS Safety Report 11786683 (Version 3)
Quarter: 2016Q1

REPORT INFORMATION
  Report Type: Report from Study
  Country: CA (occurrence: CA)
  Receive Date: 20151130
  Receipt Date: 20160125
  Transmission Date: 20160525
  Serious: Yes (Death, Hospitalization)
  Sender: FDA-Public Use
  Company Number: CA-JNJFOC-20151124272

PATIENT
  Sex: Male
  Weight: 47.17 kg

DRUGS (4)
  1. BISACODYL. [Concomitant]
     Active Substance: BISACODYL
     Route: 065
  2. HYDROMORPHONE [Concomitant]
     Active Substance: HYDROMORPHONE
     Dosage: 1-2 MG EVERY 4 HOURS AS NEEDED
     Route: 065
  3. REMICADE [Suspect]
     Active Substance: INFLIXIMAB
     Indication: CROHN^S DISEASE
     Route: 042
     Dates: start: 20150528, end: 20151124
  4. DEXILANT [Concomitant]
     Active Substance: DEXLANSOPRAZOLE
     Route: 065

REACTIONS (3)
  - Gastrointestinal neoplasm [Unknown]
  - Pleural effusion [Unknown]
  - Death [Fatal]
